FAERS Safety Report 5721287-9 (Version None)
Quarter: 2008Q2

REPORT INFORMATION
  Report Type: 
  Country: None (occurrence: None)
  Receive Date: 20080429
  Receipt Date: 20080423
  Transmission Date: 20081010
  Serious: Yes (Hospitalization)
  Sender: FDA-Public Use
  Company Number: FR-JNJFOC-20080405896

PATIENT
  Age: 37 Year
  Sex: Female

DRUGS (7)
  1. IBUPROFEN [Suspect]
     Indication: PYREXIA
  2. IBUPROFEN [Suspect]
     Indication: CONJUNCTIVITIS
  3. IBUPROFEN [Suspect]
     Indication: PHARYNGITIS
  4. AMOXICILLIN [Concomitant]
     Indication: PYREXIA
  5. AMOXICILLIN [Concomitant]
     Indication: CONJUNCTIVITIS
  6. AMOXICILLIN [Concomitant]
     Indication: PHARYNGITIS
  7. LEVONORGESTREL AND ETHINYL ESTRADIOL [Concomitant]
     Indication: ORAL CONTRACEPTION

REACTIONS (3)
  - HEPATITIS CHOLESTATIC [None]
  - LYMPHADENOPATHY [None]
  - STEVENS-JOHNSON SYNDROME [None]
